FAERS Safety Report 8061037-7 (Version None)
Quarter: 2012Q1

REPORT INFORMATION
  Report Type: 
  Country: None (occurrence: None)
  Receive Date: 20120120
  Receipt Date: 20110513
  Transmission Date: 20120608
  Serious: No
  Sender: FDA-Public Use
  Company Number: US-ALLERGAN-1106634US

PATIENT
  Age: 50 Year
  Sex: Female

DRUGS (2)
  1. RESTASIS [Suspect]
     Indication: DRY EYE
     Dosage: 2 GTT, BID
     Route: 047
     Dates: start: 20110101
  2. PROPYLENE GLYCOL [Suspect]
     Indication: PRODUCT USED FOR UNKNOWN INDICATION

REACTIONS (6)
  - EYE PRURITUS [None]
  - MADAROSIS [None]
  - DRY SKIN [None]
  - EYE IRRITATION [None]
  - OCULAR HYPERAEMIA [None]
  - EYE SWELLING [None]
